FAERS Safety Report 24267870 (Version 1)
Quarter: 2024Q3

REPORT INFORMATION
  Report Type: Spontaneous
  Country: PL (occurrence: PL)
  Receive Date: 20240830
  Receipt Date: 20240830
  Transmission Date: 20241017
  Serious: Yes (Death)
  Sender: BAYER
  Company Number: PL-BAYER-2024A124086

PATIENT
  Age: 74 Year
  Sex: Female

DRUGS (1)
  1. ADEMPAS [Suspect]
     Active Substance: RIOCIGUAT
     Dosage: UNK
     Dates: end: 202407

REACTIONS (1)
  - Glioma [Fatal]

NARRATIVE: CASE EVENT DATE: 20240701
